FAERS Safety Report 6763428-0 (Version None)
Quarter: 2010Q2

REPORT INFORMATION
  Report Type: 
  Country: None (occurrence: None)
  Receive Date: 20100608
  Receipt Date: 20100527
  Transmission Date: 20101027
  Serious: No
  Sender: FDA-Public Use
  Company Number: 20108875

PATIENT
  Sex: Male

DRUGS (1)
  1. LIORESAL [Suspect]
     Indication: MUSCLE SPASTICITY
     Dosage: 600 MCG, DAILY, INTRATHECAL
     Route: 037

REACTIONS (5)
  - IMPLANT SITE ERYTHEMA [None]
  - IMPLANT SITE SWELLING [None]
  - INFECTION [None]
  - RASH GENERALISED [None]
  - TOOTH INFECTION [None]
